FAERS Safety Report 24869116 (Version 2)
Quarter: 2025Q1

REPORT INFORMATION
  Report Type: Report from Study
  Country: NL (occurrence: NL)
  Receive Date: 20250121
  Receipt Date: 20250204
  Transmission Date: 20250408
  Serious: Yes (Other)
  Sender: VERITY PHARMACEUTICALS INC.
  Company Number: NL-VER-202500007

PATIENT
  Sex: Male

DRUGS (3)
  1. TRIPTORELIN PAMOATE [Suspect]
     Active Substance: TRIPTORELIN PAMOATE
     Indication: Prostate cancer
     Dosage: BATCH:  UI6581
     Route: 030
     Dates: start: 20220105
  2. TRIPTORELIN PAMOATE [Suspect]
     Active Substance: TRIPTORELIN PAMOATE
     Indication: Prostate cancer
     Dosage: BATCH: 001673
     Route: 030
     Dates: start: 20240704
  3. TRIPTORELIN PAMOATE [Suspect]
     Active Substance: TRIPTORELIN PAMOATE
     Indication: Prostate cancer
     Dosage: BATCH: A68820
     Route: 030
     Dates: start: 20240103

REACTIONS (1)
  - Terminal state [Unknown]
